FAERS Safety Report 19007187 (Version 1)
Quarter: 2021Q1

REPORT INFORMATION
  Report Type: Spontaneous
  Country: US (occurrence: US)
  Receive Date: 20210315
  Receipt Date: 20210315
  Transmission Date: 20210420
  Serious: Yes (Other)
  Sender: FDA-Public Use
  Company Number: None

PATIENT
  Age: 22 Year
  Sex: Female
  Weight: 121.1 kg

DRUGS (8)
  1. BAMLANIVIMAB. [Suspect]
     Active Substance: BAMLANIVIMAB
     Indication: COVID-19
     Dosage: ?          OTHER FREQUENCY:ONCE;?
     Route: 042
  2. BUPROPION XL 150 MG TABLET [Concomitant]
     Dates: start: 20200609
  3. LISDEXAMPHETAMINE 60 MG TABLET [Concomitant]
     Dates: start: 20201229
  4. SERTRALINE 50 MG TABLET [Concomitant]
     Dates: start: 20200609
  5. MELOXICAM 15 MG TABLET [Concomitant]
     Active Substance: MELOXICAM
     Dates: start: 20210129
  6. MONTELUKAST 10 MG TABLET [Concomitant]
     Active Substance: MONTELUKAST SODIUM
     Dates: start: 20210126
  7. LORAZEPAM 2 MG TABLET [Concomitant]
     Dates: start: 20200609
  8. ZOLPIDEM 10 MG TABLET [Concomitant]
     Dates: start: 20200804

REACTIONS (1)
  - Crepitations [None]

NARRATIVE: CASE EVENT DATE: 20210309
